FAERS Safety Report 7945599-3 (Version None)
Quarter: 2011Q4

REPORT INFORMATION
  Report Type: 
  Country: None (occurrence: None)
  Receive Date: 20111122
  Receipt Date: 20111110
  Transmission Date: 20120403
  Serious: Yes (Other)
  Sender: FDA-Public Use
  Company Number: 2011SP053371

PATIENT
  Age: 63 Year
  Sex: Male
  Weight: 81 kg

DRUGS (7)
  1. COPEGUS [Suspect]
     Indication: HEPATITIS C
  2. LANSOPRAZOLE [Concomitant]
  3. LANTUS [Concomitant]
  4. SPECIAFOLDINE [Concomitant]
  5. CORGARD [Concomitant]
  6. BOCEPREVIR (SCH-503034) [Suspect]
     Indication: HEPATITIS C
  7. VIRAFERONPEG [Suspect]
     Indication: HEPATITIS C

REACTIONS (3)
  - HEPATIC NEOPLASM MALIGNANT [None]
  - DIFFUSE LARGE B-CELL LYMPHOMA [None]
  - HERNIA [None]
